FAERS Safety Report 8009853-1 (Version None)
Quarter: 2011Q4

REPORT INFORMATION
  Report Type: 
  Country: None (occurrence: None)
  Receive Date: 20111221
  Receipt Date: 20111205
  Transmission Date: 20120403
  Serious: Yes (Hospitalization)
  Sender: FDA-Public Use
  Company Number: 2011AP002854

PATIENT
  Age: 65 Year
  Sex: Female

DRUGS (7)
  1. INSULIN [Suspect]
     Indication: CARDIOGENIC SHOCK
     Dosage: IVDRP
     Route: 041
  2. ESCITALOPRAM [Suspect]
     Indication: PRODUCT USED FOR UNKNOWN INDICATION
  3. QUINAPRIL HCL [Suspect]
     Indication: PRODUCT USED FOR UNKNOWN INDICATION
  4. VENLAFAXINE [Suspect]
     Indication: PRODUCT USED FOR UNKNOWN INDICATION
  5. AMITRIPTYLINE HCL [Suspect]
     Indication: PRODUCT USED FOR UNKNOWN INDICATION
  6. INSULIN [Suspect]
     Indication: CARDIOGENIC SHOCK
     Dosage: 80 IU;IVBOL
     Route: 040
  7. ATENOLOL [Suspect]
     Indication: PRODUCT USED FOR UNKNOWN INDICATION

REACTIONS (8)
  - CONFUSIONAL STATE [None]
  - CARDIAC ARREST [None]
  - ANOXIA [None]
  - INJURY [None]
  - CARDIOGENIC SHOCK [None]
  - MULTIPLE DRUG OVERDOSE [None]
  - HYPOKALAEMIA [None]
  - BALANCE DISORDER [None]
